FAERS Safety Report 5149759-9 (Version None)
Quarter: 2006Q4

REPORT INFORMATION
  Report Type: 
  Country: None (occurrence: None)
  Receive Date: 20061113
  Receipt Date: 20061109
  Transmission Date: 20070319
  Serious: Yes (Hospitalization)
  Sender: FDA-Public Use
  Company Number: AU-BRISTOL-MYERS SQUIBB COMPANY-13572003

PATIENT
  Age: 47 Year
  Sex: Female
  Weight: 40 kg

DRUGS (5)
  1. FUNGIZONE [Suspect]
     Route: 042
     Dates: start: 20051001, end: 20051004
  2. NEXIUM [Concomitant]
     Route: 048
  3. SOLONE [Concomitant]
  4. CELEBREX [Concomitant]
  5. DURAGESIC-100 [Concomitant]
     Route: 061

REACTIONS (2)
  - BLOOD CREATININE INCREASED [None]
  - RENAL IMPAIRMENT [None]
